FAERS Safety Report 6957881-7 (Version None)
Quarter: 2010Q3

REPORT INFORMATION
  Report Type: 
  Country: None (occurrence: None)
  Receive Date: 20100827
  Receipt Date: 20100827
  Transmission Date: 20110219
  Serious: Yes (Other)
  Sender: FDA-Public Use
  Company Number: None

PATIENT
  Sex: Female
  Weight: 49.8957 kg

DRUGS (1)
  1. SYNTHROID [Suspect]
     Indication: THYROIDITIS
     Dosage: 125 MCG PO QD
     Route: 048

REACTIONS (2)
  - ALOPECIA [None]
  - FEELING ABNORMAL [None]
